FAERS Safety Report 9325935 (Version 1)
Quarter: 2013Q2

REPORT INFORMATION
  Report Type: Spontaneous
  Country: US (occurrence: US)
  Receive Date: 20130604
  Receipt Date: 20130604
  Transmission Date: 20140414
  Serious: Yes (Death)
  Sender: FDA-Public Use
  Company Number: US-PFIZER INC-2013165493

PATIENT
  Age: 62 Year
  Sex: Female

DRUGS (1)
  1. VFEND [Suspect]
     Indication: FUNGAL INFECTION
     Dosage: 200 MG, 2X/DAY

REACTIONS (2)
  - Leukaemia [Fatal]
  - Lung infection [Fatal]
